FAERS Safety Report 8933567 (Version 1)
Quarter: 2012Q4

REPORT INFORMATION
  Report Type: 
  Country: US (occurrence: US)
  Receive Date: 20121128
  Receipt Date: 20121128
  Transmission Date: 20130627
  Serious: No
  Sender: FDA-Public Use
  Company Number: US-ABBOTT-12P-163-0943199-00

PATIENT
  Sex: Male
  Weight: 90.8 kg

DRUGS (14)
  1. ANDROGEL [Suspect]
     Indication: BLOOD TESTOSTERONE DECREASED
     Route: 061
  2. ANDROGEL 1.62% [Suspect]
     Indication: BLOOD TESTOSTERONE DECREASED
     Route: 061
     Dates: start: 2012, end: 201210
  3. OXYCONTIN [Concomitant]
     Indication: PAIN
  4. OXYCODONE [Concomitant]
     Indication: PAIN
  5. IBUPROFEN [Concomitant]
     Indication: PAIN
  6. XANAX [Concomitant]
     Indication: ANXIETY
  7. XANAX [Concomitant]
     Indication: INSOMNIA
  8. ATENOLOL [Concomitant]
     Indication: BLOOD PRESSURE
     Route: 048
  9. LISINOPRIL [Concomitant]
     Indication: BLOOD PRESSURE
     Route: 048
  10. BABY HEART [Concomitant]
     Indication: ILL-DEFINED DISORDER
  11. MIRALAX [Concomitant]
     Indication: CONSTIPATION
  12. METAMUCIL [Concomitant]
     Indication: CONSTIPATION
  13. STEROID INJECTIONS IN BACK [Concomitant]
     Indication: BACK PAIN
     Route: 050
  14. PROTONIX [Concomitant]
     Indication: PRODUCT USED FOR UNKNOWN INDICATION

REACTIONS (2)
  - Joint swelling [Not Recovered/Not Resolved]
  - Oedema peripheral [Not Recovered/Not Resolved]
